FAERS Safety Report 13277206 (Version 4)
Quarter: 2017Q2

REPORT INFORMATION
  Report Type: Report from Study
  Country: BR (occurrence: BR)
  Receive Date: 20170228
  Receipt Date: 20170622
  Transmission Date: 20170830
  Serious: Yes (Other)
  Sender: FDA-Public Use
  Company Number: PHHY2016BR144277

PATIENT
  Sex: Female
  Weight: 51.9 kg

DRUGS (2)
  1. EXELON PATCH [Suspect]
     Active Substance: RIVASTIGMINE
     Indication: DEMENTIA ALZHEIMER^S TYPE
     Dosage: 4.6 MG, QD (PATCH 5 CM2)
     Route: 062
  2. EXELON PATCH [Suspect]
     Active Substance: RIVASTIGMINE
     Dosage: 9.5 MG, QD (PATCH 10 CM2)
     Route: 062
     Dates: start: 20160801

REACTIONS (7)
  - Drug ineffective [Unknown]
  - Weight increased [Unknown]
  - Product adhesion issue [Unknown]
  - Application site erythema [Unknown]
  - Coma [Unknown]
  - Application site swelling [Unknown]
  - Pruritus [Unknown]
